FAERS Safety Report 8807099 (Version 1)
Quarter: 2012Q4

REPORT INFORMATION
  Report Type: 
  Country: US (occurrence: US)
  Receive Date: 20120925
  Receipt Date: 20120925
  Transmission Date: 20130627
  Serious: No
  Sender: FDA-Public Use
  Company Number: US-TEVA-359723USA

PATIENT
  Age: 59 Year
  Sex: Female
  Weight: 72.64 kg

DRUGS (6)
  1. QNASL [Suspect]
     Dosage: 160 Microgram Daily;
     Route: 045
     Dates: start: 20120827, end: 20120913
  2. LOSARTAN [Concomitant]
  3. CRESTOR [Concomitant]
  4. NEXIUM [Concomitant]
  5. HYDROCHLOROTHIAZIDE [Concomitant]
  6. CARVEDILOL [Concomitant]

REACTIONS (1)
  - Blepharospasm [Not Recovered/Not Resolved]
